FAERS Safety Report 4860825-5 (Version None)
Quarter: 2005Q4

REPORT INFORMATION
  Report Type: 
  Country: None (occurrence: None)
  Receive Date: 20051216
  Receipt Date: 20051208
  Transmission Date: 20060501
  Serious: Yes (Other)
  Sender: FDA-Public Use
  Company Number: DE_050716568

PATIENT
  Sex: Female

DRUGS (3)
  1. ZYPREXA [Suspect]
     Indication: SCHIZOAFFECTIVE DISORDER
     Dosage: 15 MG, DAILY (1/D), ORAL
     Route: 048
     Dates: start: 20040101
  2. TEGRETOL [Concomitant]
  3. CIPRALEX (ESCITALOPRAM OXALATE) [Concomitant]

REACTIONS (1)
  - CHOLELITHIASIS [None]
